FAERS Safety Report 6714987-5 (Version None)
Quarter: 2010Q2

REPORT INFORMATION
  Report Type: 
  Country: None (occurrence: None)
  Receive Date: 20100507
  Receipt Date: 20100428
  Transmission Date: 20101027
  Serious: Yes (Hospitalization)
  Sender: FDA-Public Use
  Company Number: FR-JNJFOC-20100407700

PATIENT
  Sex: Male
  Weight: 65 kg

DRUGS (7)
  1. REMINYL LP [Suspect]
     Indication: DEMENTIA ALZHEIMER'S TYPE
     Route: 048
  2. FLUINDIONE [Concomitant]
     Indication: DEEP VEIN THROMBOSIS
     Route: 065
  3. OLMESARTAN MEDOXOMIL [Concomitant]
     Route: 065
  4. AVODART [Concomitant]
     Route: 065
  5. STABLON [Concomitant]
     Route: 065
  6. CLAMOXYL [Concomitant]
     Route: 065
  7. VOGALENE [Concomitant]
     Route: 065

REACTIONS (7)
  - ABDOMINAL PAIN [None]
  - DEHYDRATION [None]
  - DIARRHOEA [None]
  - FOOD INTOLERANCE [None]
  - OVERDOSE [None]
  - RENAL FAILURE ACUTE [None]
  - TROPONIN INCREASED [None]
